FAERS Safety Report 7126427-5 (Version None)
Quarter: 2010Q4

REPORT INFORMATION
  Report Type: 
  Country: None (occurrence: None)
  Receive Date: 20101129
  Receipt Date: 20101118
  Transmission Date: 20110411
  Serious: Yes (Hospitalization, Other)
  Sender: FDA-Public Use
  Company Number: NO-JNJFOC-20100908784

PATIENT
  Sex: Male

DRUGS (2)
  1. RISPERDAL CONSTA [Suspect]
     Indication: ILL-DEFINED DISORDER
     Route: 030
  2. RISPERDAL CONSTA [Suspect]
     Route: 030

REACTIONS (7)
  - ABASIA [None]
  - BALANCE DISORDER [None]
  - COORDINATION ABNORMAL [None]
  - DRUG INEFFECTIVE [None]
  - EATING DISORDER [None]
  - SPEECH DISORDER [None]
  - TREMOR [None]
